FAERS Safety Report 25600414 (Version 1)
Quarter: 2025Q3

REPORT INFORMATION
  Report Type: Spontaneous
  Country: EU (occurrence: EU)
  Receive Date: 20250724
  Receipt Date: 20250724
  Transmission Date: 20251020
  Serious: Yes (Other)
  Sender: ALEXION PHARMACEUTICALS
  Company Number: EU-AstraZeneca-CH-00913853AM

PATIENT
  Sex: Female

DRUGS (2)
  1. TICAGRELOR [Suspect]
     Active Substance: TICAGRELOR
     Indication: Aneurysm repair
     Dosage: 90 MILLIGRAM, BID
     Route: 065
     Dates: start: 202506
  2. TICAGRELOR [Suspect]
     Active Substance: TICAGRELOR
     Indication: Stent placement

REACTIONS (11)
  - Cerebrovascular accident [Unknown]
  - Bleeding time prolonged [Unknown]
  - Fatigue [Unknown]
  - Constipation [Unknown]
  - Epistaxis [Unknown]
  - Pain [Unknown]
  - Dysstasia [Unknown]
  - Nervousness [Unknown]
  - Contusion [Recovering/Resolving]
  - Peripheral swelling [Unknown]
  - Off label use [Unknown]
